FAERS Safety Report 12840341 (Version 1)
Quarter: 2016Q4

REPORT INFORMATION
  Report Type: Spontaneous
  Country: FR (occurrence: FR)
  Receive Date: 20161012
  Receipt Date: 20161012
  Transmission Date: 20170207
  Serious: Yes (Life-Threatening, Hospitalization)
  Sender: FDA-Public Use
  Company Number: FR-ELI_LILLY_AND_COMPANY-FR201610002180

PATIENT
  Age: 68 Year
  Sex: Female

DRUGS (2)
  1. CARBOPLATIN ACCORD [Suspect]
     Active Substance: CARBOPLATIN
     Indication: LUNG ADENOCARCINOMA STAGE IV
     Dosage: 785 MG, CYCLICAL
     Route: 042
     Dates: start: 20160411, end: 20160411
  2. ALIMTA [Suspect]
     Active Substance: PEMETREXED DISODIUM
     Indication: LUNG ADENOCARCINOMA STAGE IV
     Dosage: 580 MG, CYCLICAL
     Route: 042
     Dates: start: 20160411, end: 20160411

REACTIONS (10)
  - Vomiting [Recovered/Resolved]
  - Off label use [Recovered/Resolved]
  - Septic shock [Unknown]
  - Dyspepsia [Unknown]
  - Hyponatraemia [Recovered/Resolved]
  - Renal tubular necrosis [Unknown]
  - Somnolence [Recovered/Resolved]
  - General physical health deterioration [Recovered/Resolved]
  - Bone marrow failure [Recovered/Resolved]
  - Renal failure [Recovered/Resolved]

NARRATIVE: CASE EVENT DATE: 20160411
